APPROVED DRUG PRODUCT: RECLAST
Active Ingredient: ZOLEDRONIC ACID
Strength: EQ 5MG BASE/100ML
Dosage Form/Route: INJECTABLE;INTRAVENOUS
Application: N021817 | Product #001 | TE Code: AP
Applicant: SANDOZ INC
Approved: Apr 16, 2007 | RLD: Yes | RS: Yes | Type: RX

PATENTS:
Patent 7932241 | Expires: Feb 5, 2028
Patent 7932241*PED | Expires: Aug 5, 2028